FAERS Safety Report 9792510 (Version 3)
Quarter: 2014Q2

REPORT INFORMATION
  Report Type: Report from Study
  Country: JP (occurrence: JP)
  Receive Date: 20140102
  Receipt Date: 20140602
  Transmission Date: 20141212
  Serious: Yes (Hospitalization)
  Sender: FDA-Public Use
  Company Number: JP-SA-2013SA134972

PATIENT
  Age: 60 Year
  Sex: Male
  Weight: 67.6 kg

DRUGS (12)
  1. THYMOGLOBULINE [Suspect]
     Indication: APLASTIC ANAEMIA
     Dosage: 25 MG INJECTION
     Route: 042
     Dates: start: 20121026, end: 20121030
  2. PREDNISOLONE [Suspect]
     Indication: PROPHYLAXIS
     Dosage: 5 MG
     Route: 065
     Dates: start: 20121031, end: 20121116
  3. NEORAL [Concomitant]
     Indication: APLASTIC ANAEMIA
     Dosage: NEORAL 50 MG - FROM 02-NOV-2012 TO ONGOING?NEORAL 25 MG- FROM 02-NOV-2012 TO 26-NOV-2012
     Dates: start: 20121102
  4. DIFLUCAN [Concomitant]
     Indication: ANTIFUNGAL PROPHYLAXIS
     Dosage: 100 MG
     Dates: start: 20121025
  5. BAKTAR [Concomitant]
     Indication: INFECTION PROPHYLAXIS
     Dates: start: 20121025
  6. PARIET [Concomitant]
     Indication: PROPHYLAXIS AGAINST GASTROINTESTINAL ULCER
     Dosage: 10 MG
     Dates: start: 20121025
  7. BIOFERMIN R [Concomitant]
     Indication: PROPHYLAXIS
     Dates: start: 20121025
  8. PURSENNID [Concomitant]
     Indication: CONSTIPATION
     Dates: start: 20121019, end: 20121118
  9. CALONAL [Concomitant]
     Indication: PROPHYLAXIS
     Dates: start: 20121027, end: 20121027
  10. HYDROCORTONE [Concomitant]
     Dates: start: 20121026, end: 20121026
  11. CHLOR-TRIMETON [Concomitant]
     Indication: ALLERGY PROPHYLAXIS
     Dates: start: 20121017, end: 20121203
  12. SOL-MELCORT [Concomitant]
     Indication: PROPHYLAXIS
     Dosage: 125 MG
     Dates: start: 20121026, end: 20121030

REACTIONS (6)
  - Gastritis haemorrhagic [Recovering/Resolving]
  - Serum sickness [Recovered/Resolved]
  - Renal impairment [Unknown]
  - Pyrexia [Unknown]
  - Arthralgia [Unknown]
  - Febrile neutropenia [Recovered/Resolved]
